FAERS Safety Report 5177173-9 (Version None)
Quarter: 2006Q4

REPORT INFORMATION
  Report Type: 
  Country: None (occurrence: None)
  Receive Date: 20061218
  Receipt Date: 20061022
  Transmission Date: 20070319
  Serious: Yes (Other)
  Sender: FDA-Public Use
  Company Number: AU-ROCHE-474808

PATIENT
  Sex: Male

DRUGS (4)
  1. XENICAL [Suspect]
     Indication: DRUG USE FOR UNKNOWN INDICATION
     Route: 065
  2. SEROQUEL [Concomitant]
     Indication: DRUG USE FOR UNKNOWN INDICATION
     Dosage: DOSE REPORTED AS 4/NIGHT.
     Route: 065
  3. SOLIAN [Concomitant]
     Indication: DRUG USE FOR UNKNOWN INDICATION
     Dosage: DOSE REPORTED AS ^DAILY.^
     Route: 065
  4. SOLIAN [Concomitant]
     Dosage: DOSE: 2/DAY.
     Route: 065

REACTIONS (1)
  - PSYCHOTIC DISORDER [None]
